FAERS Safety Report 7069966-8 (Version None)
Quarter: 2010Q4

REPORT INFORMATION
  Report Type: 
  Country: None (occurrence: None)
  Receive Date: 20101028
  Receipt Date: 20100802
  Transmission Date: 20110411
  Serious: No
  Sender: FDA-Public Use
  Company Number: US-WYE-H16742010

PATIENT
  Sex: Male
  Weight: 86.26 kg

DRUGS (6)
  1. PROTONIX [Suspect]
     Dates: start: 20100701
  2. SIMVASTATIN [Concomitant]
  3. XANAX [Concomitant]
  4. SYNTHROID [Concomitant]
  5. PLAVIX [Concomitant]
  6. ACETYLSALICYLIC ACID [Concomitant]

REACTIONS (2)
  - ABDOMINAL PAIN UPPER [None]
  - HEADACHE [None]
